FAERS Safety Report 7818430-4 (Version None)
Quarter: 2011Q4

REPORT INFORMATION
  Report Type: 
  Country: None (occurrence: None)
  Receive Date: 20111017
  Receipt Date: 20101001
  Transmission Date: 20120403
  Serious: No
  Sender: FDA-Public Use
  Company Number: US-BAYER-201036432NA

PATIENT
  Age: 10 Year
  Sex: Female

DRUGS (5)
  1. HYOSCYAMINE [Concomitant]
  2. ULTRAVIST 150 [Suspect]
     Indication: COMPUTERISED TOMOGRAM
     Dosage: SIZE OF VIAL/BOTTLE 500
     Route: 042
     Dates: start: 20101001
  3. SINGULAIR [Concomitant]
  4. CHOLESTYRAMINE [Concomitant]
  5. ACIPHEX [Concomitant]

REACTIONS (1)
  - URTICARIA [None]
